FAERS Safety Report 4740844-X (Version None)
Quarter: 2005Q3

REPORT INFORMATION
  Report Type: 
  Country: None (occurrence: None)
  Receive Date: 20050810
  Receipt Date: 20041104
  Transmission Date: 20060218
  Serious: No
  Sender: FDA-Public Use
  Company Number: US-GLAXOSMITHKLINE-A0532665A

PATIENT
  Age: 79 Year

DRUGS (1)
  1. TAGAMET HB 200 [Suspect]
     Indication: CHEST PAIN
     Dates: start: 20041031

REACTIONS (1)
  - INSOMNIA [None]
